FAERS Safety Report 24625818 (Version 1)
Quarter: 2024Q4

REPORT INFORMATION
  Report Type: Spontaneous
  Country: US (occurrence: US)
  Receive Date: 20241115
  Receipt Date: 20241115
  Transmission Date: 20250115
  Serious: No
  Sender: ANI
  Company Number: US-ANIPHARMA-2024-US-050561

PATIENT
  Age: 43 Year
  Sex: Male
  Weight: 104.33 kg

DRUGS (4)
  1. CORTICOTROPIN [Suspect]
     Active Substance: CORTICOTROPIN
     Indication: Multiple sclerosis
     Dosage: DAILY INJECTION
     Route: 051
     Dates: start: 20240907
  2. VITAMIN D [Concomitant]
     Active Substance: VITAMIN D NOS
  3. MELATONIN [Concomitant]
     Active Substance: MELATONIN
  4. PLEGRIDY [Suspect]
     Active Substance: PEGINTERFERON BETA-1A

REACTIONS (10)
  - Protein total decreased [Unknown]
  - Product administration interrupted [Recovered/Resolved]
  - Peripheral swelling [Recovering/Resolving]
  - Pain of skin [Not Recovered/Not Resolved]
  - Joint swelling [Recovering/Resolving]
  - Drug interaction [Not Recovered/Not Resolved]
  - Swelling face [Recovering/Resolving]
  - Pollakiuria [Unknown]
  - Blood potassium decreased [Unknown]
  - Blood albumin decreased [Unknown]

NARRATIVE: CASE EVENT DATE: 20240901
